FAERS Safety Report 10713499 (Version 1)
Quarter: 2015Q1

REPORT INFORMATION
  Report Type: Spontaneous
  Country: US (occurrence: US)
  Receive Date: 20150115
  Receipt Date: 20150115
  Transmission Date: 20150721
  Serious: Yes (Hospitalization, Other)
  Sender: FDA-Public Use
  Company Number: US-RB PHARMACEUTICALS LIMITED-RB-074782-2015

PATIENT
  Sex: Female

DRUGS (3)
  1. OTHER ILLICIT DRUGS [Suspect]
     Active Substance: UNSPECIFIED INGREDIENT
     Indication: DRUG ABUSE
     Dosage: UNK
     Route: 065
  2. BUPRENORPHINE [Suspect]
     Active Substance: BUPRENORPHINE
     Indication: DRUG DEPENDENCE
     Dosage: UNK
     Route: 055
  3. NICOTINE. [Concomitant]
     Active Substance: NICOTINE
     Indication: NICOTINE DEPENDENCE
     Dosage: 20 CIGARETTES, PER DAY
     Route: 055

REACTIONS (6)
  - Intentional product misuse [Not Recovered/Not Resolved]
  - Wrong technique in drug usage process [Not Recovered/Not Resolved]
  - Substance abuse [Not Recovered/Not Resolved]
  - Maternal exposure during pregnancy [Not Recovered/Not Resolved]
  - Premature labour [Recovered/Resolved]
  - Pregnancy [None]

NARRATIVE: CASE EVENT DATE: 201406
